FAERS Safety Report 9215218 (Version 1)
Quarter: 2013Q2

REPORT INFORMATION
  Report Type: Spontaneous
  Country: US (occurrence: US)
  Receive Date: 20130405
  Receipt Date: 20130405
  Transmission Date: 20140414
  Serious: Yes (Other)
  Sender: FDA-Public Use
  Company Number: CHPA2013US005841

PATIENT
  Age: 75 Year
  Sex: Female

DRUGS (1)
  1. THERAPEUTIC MINERAL ICE [Suspect]
     Indication: BACK PAIN
     Dosage: UNK, UNK
     Route: 061

REACTIONS (2)
  - Myasthenia gravis [Not Recovered/Not Resolved]
  - Expired drug administered [Unknown]
